FAERS Safety Report 10231078 (Version 1)
Quarter: 2014Q2

REPORT INFORMATION
  Report Type: Spontaneous
  Country: US (occurrence: US)
  Receive Date: 20140611
  Receipt Date: 20140611
  Transmission Date: 20141212
  Serious: Yes (Other)
  Sender: FDA-Public Use
  Company Number: US-GILEAD-2014-0104965

PATIENT
  Age: 56 Year
  Sex: Female

DRUGS (16)
  1. LETAIRIS [Suspect]
     Indication: PULMONARY ARTERIAL HYPERTENSION
     Dosage: 10 MG, QD
     Route: 065
     Dates: start: 20140515
  2. VENTAVIS [Suspect]
     Indication: PULMONARY ARTERIAL HYPERTENSION
     Dosage: 20 ?G, QID
     Route: 065
     Dates: start: 20130312
  3. XYZAL [Concomitant]
  4. POTASSIUM CHLORIDE [Concomitant]
  5. ZANTAC [Concomitant]
  6. WARFARIN [Concomitant]
  7. ROBAXIN [Concomitant]
  8. RISPERDAL [Concomitant]
  9. PROVIGIL                           /01265601/ [Concomitant]
  10. PRAVASTATIN [Concomitant]
  11. PERCOCET                           /00867901/ [Concomitant]
  12. LYRICA [Concomitant]
  13. KEPPRA [Concomitant]
  14. IMITREX                            /01044801/ [Concomitant]
  15. CYMBALTA [Concomitant]
  16. AMBIEN [Concomitant]

REACTIONS (2)
  - Fluid retention [Unknown]
  - Weight increased [Unknown]
